FAERS Safety Report 10151039 (Version 2)
Quarter: 2014Q2

REPORT INFORMATION
  Report Type: Report from Study
  Country: US (occurrence: US)
  Receive Date: 20140502
  Receipt Date: 20140618
  Transmission Date: 20141212
  Serious: Yes (Death)
  Sender: FDA-Public Use
  Company Number: PHEH2014US008796

PATIENT
  Sex: Male
  Weight: 68.49 kg

DRUGS (8)
  1. TOBI PODHALER [Suspect]
     Indication: CYSTIC FIBROSIS
     Dosage: 112 MG, TWICE A DAY
     Route: 055
  2. TOBI PODHALER [Suspect]
     Indication: LUNG DISORDER
  3. TOBI PODHALER [Suspect]
     Indication: PSEUDOMONAS INFECTION
  4. ALBUTEROL HFA [Concomitant]
     Indication: CYSTIC FIBROSIS
     Dosage: 2 PUFF Q46 PRN
     Route: 055
  5. ALBUTEROL [Concomitant]
     Indication: CYSTIC FIBROSIS
     Dosage: 1 DF, BID
     Route: 055
  6. AZITHROMYCIN [Concomitant]
     Indication: CYSTIC FIBROSIS
     Dosage: 250 MG, DAILY
     Route: 048
  7. PULMOZYME [Concomitant]
     Indication: CYSTIC FIBROSIS
     Dosage: 2.5 MG, DAILY
     Route: 055
  8. HYPERTONIC SALINE SOLUTION [Concomitant]
     Indication: CYSTIC FIBROSIS
     Dosage: 4 ML, BID
     Route: 055

REACTIONS (1)
  - Cardio-respiratory arrest [Fatal]
